FAERS Safety Report 17261290 (Version 3)
Quarter: 2024Q4

REPORT INFORMATION
  Report Type: Report from Study
  Country: GB (occurrence: GB)
  Receive Date: 20200113
  Receipt Date: 20241230
  Transmission Date: 20250115
  Serious: Yes (Death)
  Sender: ROCHE
  Company Number: GB-TEVA-2019-GB-1156643

PATIENT

DRUGS (5)
  1. RITUXIMAB [Suspect]
     Active Substance: RITUXIMAB
     Indication: Non-Hodgkin^s lymphoma
     Dosage: ON DAY 1 OF EACH CYCLE
     Route: 065
  2. VINCRISTINE [Suspect]
     Active Substance: VINCRISTINE
     Indication: Non-Hodgkin^s lymphoma
     Dosage: FREQUENCY TEXT:ON DAY 1 OF EACH CYCLE
     Route: 065
  3. PREDNISOLONE [Suspect]
     Active Substance: PREDNISOLONE
     Indication: Non-Hodgkin^s lymphoma
     Dosage: FREQUENCY TEXT:ON DAYS 1-5
     Route: 065
  4. DOXORUBICIN [Suspect]
     Active Substance: DOXORUBICIN
     Indication: Non-Hodgkin^s lymphoma
     Dosage: FREQUENCY TEXT:ON DAY 1 OF EACH CYCLE
     Route: 065
  5. CYCLOPHOSPHAMIDE [Suspect]
     Active Substance: CYCLOPHOSPHAMIDE
     Indication: Non-Hodgkin^s lymphoma
     Dosage: FREQUENCY TEXT:ON DAY 1 OF EACH CYCLE
     Route: 065

REACTIONS (6)
  - Gastrointestinal haemorrhage [Fatal]
  - Fatigue [Unknown]
  - Neuropathy peripheral [Unknown]
  - Alopecia [Unknown]
  - Ejection fraction decreased [Unknown]
  - Disease progression [Fatal]
